FAERS Safety Report 9522732 (Version 1)
Quarter: 2013Q1

REPORT INFORMATION
  Report Type: Spontaneous
  Country: US (occurrence: None)
  Receive Date: 20130305
  Receipt Date: 20130305
  Transmission Date: 20140127
  Serious: Yes (Hospitalization, Other)
  Sender: FDA-Public Use
  Company Number: 163-21880-12080351

PATIENT
  Age: 62 Year
  Sex: Male
  Weight: 79.38 kg

DRUGS (9)
  1. REVLIMID (LENALIDOMIDE) (CAPSULES) [Suspect]
     Indication: PLASMA CELL MYELOMA
     Route: 048
     Dates: start: 201112
  2. ACYCLOVIR (ACICLOVIR) (ACICLOVIR) [Concomitant]
  3. BACTRIM [Concomitant]
  4. CALCIUM [Concomitant]
  5. DECADRON (DEXAMETHASONE) [Concomitant]
  6. FRAGMIN (HEPARIN-FRACTION, SODIUM SALT) [Concomitant]
  7. SERTRALINE [Concomitant]
  8. VELCADE (BORTEZOMIB) [Concomitant]
  9. ZOMETA (ZOLEDRONIC ACID) [Concomitant]

REACTIONS (3)
  - Pneumonia [None]
  - Urinary tract infection [None]
  - Abdominal pain [None]
